FAERS Safety Report 17650063 (Version 1)
Quarter: 2020Q2

REPORT INFORMATION
  Report Type: Spontaneous
  Country: US (occurrence: US)
  Receive Date: 20200408
  Receipt Date: 20200408
  Transmission Date: 20200713
  Serious: No
  Sender: FDA-Public Use
  Company Number: None

PATIENT
  Age: 43 Year
  Sex: Male
  Weight: 108 kg

DRUGS (1)
  1. DABIGATRAN (DABIGATRAN ETEXILATE 150MG CAP, ORAL,UD) [Suspect]
     Active Substance: DABIGATRAN ETEXILATE
     Indication: PULMONARY EMBOLISM
     Route: 048
     Dates: start: 20200309, end: 20200313

REACTIONS (1)
  - Rash [None]

NARRATIVE: CASE EVENT DATE: 20200316
